FAERS Safety Report 7346156-2 (Version None)
Quarter: 2011Q1

REPORT INFORMATION
  Report Type: 
  Country: None (occurrence: None)
  Receive Date: 20110311
  Receipt Date: 20110228
  Transmission Date: 20110831
  Serious: Yes (Other)
  Sender: FDA-Public Use
  Company Number: PHHY2010MX45620

PATIENT
  Age: 72 Year
  Sex: Female

DRUGS (4)
  1. ACLASTA [Suspect]
     Dosage: 5 MG ONCE A YEAR
     Route: 042
     Dates: start: 20100201
  2. ACLASTA [Suspect]
     Dosage: 5 MG ONCE A YEAR
     Route: 042
     Dates: start: 20110101
  3. ACLASTA [Suspect]
     Indication: OSTEOPOROSIS
     Dosage: 5 MG ONCE A YEAR
     Route: 042
     Dates: start: 20090201
  4. CALTRATE + D [Concomitant]
     Indication: OSTEOPENIA
     Dosage: 1 DF

REACTIONS (3)
  - FALL [None]
  - SPINAL FRACTURE [None]
  - RIB FRACTURE [None]
